FAERS Safety Report 5769987-9 (Version None)
Quarter: 2008Q2

REPORT INFORMATION
  Report Type: 
  Country: None (occurrence: None)
  Receive Date: 20080613
  Receipt Date: 20080416
  Transmission Date: 20081010
  Serious: No
  Sender: FDA-Public Use
  Company Number: US-ABBOTT-08P-163-0447750-00

PATIENT
  Sex: Female
  Weight: 63.56 kg

DRUGS (11)
  1. HUMIRA [Suspect]
     Indication: RHEUMATOID ARTHRITIS
     Dosage: SYRINGE
     Route: 058
     Dates: start: 20050326, end: 20070401
  2. HUMIRA [Suspect]
     Dosage: PEN
     Dates: start: 20080416
  3. PREDNISONE TAB [Concomitant]
     Indication: RHEUMATOID ARTHRITIS
     Route: 048
  4. AMITRIPTYLINE HYDROCHLORIDE [Concomitant]
     Indication: DEPRESSION
     Dosage: 2 TABS IN AM AND 2 TABS IN PM
     Route: 048
  5. DEXTROPROPOXYPHENE HYDROCHLORIDE [Concomitant]
     Indication: PAIN
     Route: 048
  6. PROPACET 100 [Concomitant]
     Indication: PAIN
     Route: 048
  7. DYAZIDE [Concomitant]
     Indication: DIURETIC THERAPY
     Route: 048
  8. FLURAZEPAM HYDROCHLORIDE [Concomitant]
     Indication: INSOMNIA
     Route: 048
  9. PHENOBARBITAL TAB [Concomitant]
     Indication: LOSS OF CONSCIOUSNESS
     Dosage: AT BEDTIME
     Route: 048
  10. FISH OIL [Concomitant]
     Indication: MEDICAL DIET
     Route: 048
  11. VEG VITAMIN [Concomitant]
     Indication: VITAMIN SUPPLEMENTATION
     Route: 048

REACTIONS (4)
  - ARTHRALGIA [None]
  - JOINT SWELLING [None]
  - TOOTH INFECTION [None]
  - TOOTHACHE [None]
